FAERS Safety Report 15685634 (Version 2)
Quarter: 2018Q4

REPORT INFORMATION
  Report Type: Report from Study
  Country: US (occurrence: US)
  Receive Date: 20181204
  Receipt Date: 20181211
  Transmission Date: 20190205
  Serious: Yes (Hospitalization, Other)
  Sender: FDA-Public Use
  Company Number: US-EXELIXIS-XL18418017305

PATIENT
  Age: 49 Year
  Sex: Female
  Weight: 112.1 kg

DRUGS (9)
  1. CELEXA [Concomitant]
     Active Substance: CITALOPRAM HYDROBROMIDE
  2. CLARITIN [Concomitant]
     Active Substance: LORATADINE
  3. GLUCOTROL [Concomitant]
     Active Substance: GLIPIZIDE
  4. ATIVAN [Concomitant]
     Active Substance: LORAZEPAM
  5. METFORMIN [Concomitant]
     Active Substance: METFORMIN HYDROCHLORIDE
  6. LIPITOR [Concomitant]
     Active Substance: ATORVASTATIN CALCIUM
  7. XL184 [Suspect]
     Active Substance: CABOZANTINIB
     Indication: TRIPLE NEGATIVE BREAST CANCER
     Dosage: 40 MG, QD
     Route: 048
     Dates: start: 20181121, end: 20181125
  8. BECLOMETHASONE [Concomitant]
     Active Substance: BECLOMETHASONE
  9. NIVOLUMAB [Suspect]
     Active Substance: NIVOLUMAB
     Indication: TRIPLE NEGATIVE BREAST CANCER
     Dosage: 480 MG, Q4WEEKS
     Route: 042
     Dates: start: 20181121

REACTIONS (3)
  - Hypoxia [Unknown]
  - Pneumonitis [Unknown]
  - Dyspnoea [Unknown]

NARRATIVE: CASE EVENT DATE: 20181126
